FAERS Safety Report 18412589 (Version 1)
Quarter: 2020Q4

REPORT INFORMATION
  Report Type: Spontaneous
  Country: DE (occurrence: DE)
  Receive Date: 20201021
  Receipt Date: 20201021
  Transmission Date: 20210114
  Serious: Yes (Hospitalization, Other)
  Sender: FDA-Public Use
  Company Number: DE-EISAI MEDICAL RESEARCH-EC-2020-081931

PATIENT
  Age: 70 Year
  Sex: Male
  Weight: 98 kg

DRUGS (5)
  1. HEPA-MERZ [Concomitant]
     Indication: PRODUCT USED FOR UNKNOWN INDICATION
     Dosage: DOSE AND FREQUENCY UNKNOWN
     Route: 048
  2. METFORMIN [Concomitant]
     Active Substance: METFORMIN HYDROCHLORIDE
     Indication: TYPE 2 DIABETES MELLITUS
     Dosage: STOPPED DURING HOSPITAL STAY
     Route: 048
     Dates: end: 2020
  3. LENVIMA [Suspect]
     Active Substance: LENVATINIB
     Indication: HEPATOCELLULAR CARCINOMA
     Dosage: IN THE MORNING
     Route: 048
     Dates: start: 20200831, end: 20200908
  4. TELMISARTAN. [Concomitant]
     Active Substance: TELMISARTAN
     Indication: HYPERTENSION
     Dosage: DOSE AND FREQUENCY UNKNOWN
     Route: 048
  5. TORASEMIDE [Concomitant]
     Active Substance: TORSEMIDE
     Indication: OEDEMA PERIPHERAL
     Dosage: PAUSING DURING VOLUME THERAPY
     Route: 065

REACTIONS (24)
  - Tumour compression [Not Recovered/Not Resolved]
  - Blood bilirubin increased [Not Recovered/Not Resolved]
  - Oedema peripheral [Recovering/Resolving]
  - Weight decreased [Not Recovered/Not Resolved]
  - Transaminases increased [Not Recovered/Not Resolved]
  - Blood albumin abnormal [Unknown]
  - General physical health deterioration [Unknown]
  - Disturbance in attention [Unknown]
  - Cholangitis [Not Recovered/Not Resolved]
  - Folate deficiency [Unknown]
  - Cholestasis [Not Recovered/Not Resolved]
  - International normalised ratio abnormal [Unknown]
  - Disturbance in attention [Unknown]
  - Hepatic encephalopathy [Recovered/Resolved]
  - Acute kidney injury [Recovered/Resolved]
  - Normochromic normocytic anaemia [Unknown]
  - Hallucination [Recovered/Resolved]
  - Ocular icterus [Unknown]
  - Jaundice [Unknown]
  - Asthenia [Unknown]
  - Hyponatraemia [Recovered/Resolved]
  - Pyrexia [Recovered/Resolved]
  - Hyperbilirubinaemia [Not Recovered/Not Resolved]
  - Chromaturia [Unknown]

NARRATIVE: CASE EVENT DATE: 2020
